FAERS Safety Report 8951236 (Version 1)
Quarter: 2012Q4

REPORT INFORMATION
  Report Type: Spontaneous
  Country: US (occurrence: None)
  Receive Date: 20121129
  Receipt Date: 20121129
  Transmission Date: 20130627
  Serious: Yes (Other)
  Sender: FDA-Public Use
  Company Number: 20120711

PATIENT
  Age: 75 Year
  Sex: Male

DRUGS (15)
  1. DEXFERRUM [Suspect]
     Dosage: 750 mg total @100
     Dates: start: 20121112, end: 20121112
  2. TYLENOL [Concomitant]
  3. ACYCLOVIR [Concomitant]
  4. VITAMIN C [Concomitant]
  5. FERROUS SULFATE [Concomitant]
  6. LISINOPRIL [Concomitant]
  7. OMEPRAZOLE [Concomitant]
  8. PEGFILGRASTIM (NEULASTA) [Concomitant]
  9. SIMVASTATIN [Concomitant]
  10. SOTALOL [Concomitant]
  11. WARFARIN (COUMADIN) [Concomitant]
  12. TRIMETHOPRIM/SULFAMETHOXAZOLE (VACTRIM) [Concomitant]
  13. UNSPECIFIED CHEMOTHERAPY AGENTS [Concomitant]
  14. TERAZOSIN [Concomitant]
  15. NITROGLYCERIN [Concomitant]

REACTIONS (3)
  - Vessel puncture site haemorrhage [None]
  - Diarrhoea [None]
  - International normalised ratio increased [None]
